FAERS Safety Report 7559548-3 (Version None)
Quarter: 2011Q2

REPORT INFORMATION
  Report Type: 
  Country: None (occurrence: None)
  Receive Date: 20110621
  Receipt Date: 20110617
  Transmission Date: 20111010
  Serious: No
  Sender: FDA-Public Use
  Company Number: US-TEVA-286956USA

PATIENT
  Sex: Female

DRUGS (2)
  1. PROAIR HFA [Suspect]
     Dosage: AS NEEDED
     Route: 055
  2. ALPRAZOLAM [Concomitant]
     Dosage: AS NEEDED
     Route: 048

REACTIONS (1)
  - BURNING SENSATION [None]
